FAERS Safety Report 5420024-5 (Version None)
Quarter: 2007Q3

REPORT INFORMATION
  Report Type: 
  Country: None (occurrence: None)
  Receive Date: 20070718
  Receipt Date: 20060623
  Transmission Date: 20080115
  Serious: Yes (Hospitalization, Other)
  Sender: FDA-Public Use
  Company Number: 2006079915

PATIENT
  Age: 67 Year
  Sex: Female
  Weight: 86.1834 kg

DRUGS (1)
  1. CELEBREX [Suspect]
     Indication: ANALGESIA
     Dosage: 400 MG (200 MG, 2 IN 1 D)

REACTIONS (1)
  - MYOCARDIAL INFARCTION [None]
